FAERS Safety Report 7747503-X (Version None)
Quarter: 2011Q3

REPORT INFORMATION
  Report Type: 
  Country: None (occurrence: None)
  Receive Date: 20110913
  Receipt Date: 20110907
  Transmission Date: 20111222
  Serious: Yes (Hospitalization)
  Sender: FDA-Public Use
  Company Number: CA-SANOFI-AVENTIS-2011SA057793

PATIENT
  Age: 64 Year
  Sex: Female

DRUGS (9)
  1. PLAVIX [Suspect]
     Route: 048
     Dates: start: 20081001, end: 20110820
  2. ACCUPRIL [Concomitant]
     Route: 048
  3. FUROSEMIDE [Concomitant]
     Route: 048
  4. ACTOS [Concomitant]
     Indication: DIABETES MELLITUS
     Route: 048
  5. BRICANYL [Concomitant]
     Indication: ASTHMA
     Route: 055
  6. METFORMIN HCL [Concomitant]
     Indication: DIABETES MELLITUS
     Route: 048
  7. PANTOPRAZOLE [Concomitant]
     Indication: PROPHYLAXIS
     Route: 048
  8. LESCOL [Concomitant]
     Indication: HYPERCHOLESTEROLAEMIA
     Route: 048
  9. XENICAL [Concomitant]
     Route: 048

REACTIONS (4)
  - LETHARGY [None]
  - CHEST PAIN [None]
  - RED BLOOD CELL COUNT DECREASED [None]
  - DYSPNOEA [None]
